FAERS Safety Report 5411966-5 (Version None)
Quarter: 2007Q3

REPORT INFORMATION
  Report Type: 
  Country: None (occurrence: None)
  Receive Date: 20070810
  Receipt Date: 20070810
  Transmission Date: 20080115
  Serious: Yes (Hospitalization)
  Sender: FDA-Public Use
  Company Number: None

PATIENT
  Sex: Female
  Weight: 58.6 kg

DRUGS (2)
  1. CISPLATIN [Suspect]
     Dosage: 78.5 MG
  2. NAVELBINE [Suspect]
     Dosage: 94.2 MG

REACTIONS (3)
  - MUSCLE INJURY [None]
  - PAIN [None]
  - WEIGHT BEARING DIFFICULTY [None]
